FAERS Safety Report 8247749-0 (Version None)
Quarter: 2012Q1

REPORT INFORMATION
  Report Type: 
  Country: None (occurrence: None)
  Receive Date: 20120330
  Receipt Date: 20120321
  Transmission Date: 20120608
  Serious: Yes (Death, Hospitalization)
  Sender: FDA-Public Use
  Company Number: AT-GLAXOSMITHKLINE-B0768765B

PATIENT
  Sex: Female
  Weight: 69 kg

DRUGS (2)
  1. LAPATINIB [Suspect]
     Indication: BREAST NEOPLASM
     Dosage: 1250MG PER DAY
     Route: 048
     Dates: start: 20110915, end: 20111215
  2. DOXORUBICIN HYDROCHLORIDE [Suspect]
     Indication: BREAST NEOPLASM
     Dosage: 40MGM2 CYCLIC
     Route: 042
     Dates: start: 20110915, end: 20111122

REACTIONS (1)
  - SEPSIS [None]
